FAERS Safety Report 25449389 (Version 1)
Quarter: 2025Q2

REPORT INFORMATION
  Report Type: Report from Study
  Country: US (occurrence: US)
  Receive Date: 20250618
  Receipt Date: 20250618
  Transmission Date: 20250716
  Serious: Yes (Hospitalization)
  Sender: TAKEDA
  Company Number: US-TAKEDA-2024TUS076981

PATIENT
  Age: 28 Year
  Sex: Female

DRUGS (10)
  1. HUMAN C1-ESTERASE INHIBITOR [Suspect]
     Active Substance: HUMAN C1-ESTERASE INHIBITOR
     Indication: Immune system disorder
     Dosage: 1000 INTERNATIONAL UNIT, Q72H
     Dates: start: 202407
  2. HUMAN C1-ESTERASE INHIBITOR [Suspect]
     Active Substance: HUMAN C1-ESTERASE INHIBITOR
  3. HUMAN C1-ESTERASE INHIBITOR [Suspect]
     Active Substance: HUMAN C1-ESTERASE INHIBITOR
  4. ONDANSETRON HYDROCHLORIDE [Concomitant]
     Active Substance: ONDANSETRON HYDROCHLORIDE
  5. EPINEPHRINE [Concomitant]
     Active Substance: EPINEPHRINE
  6. GAMUNEX-C [Concomitant]
     Active Substance: HUMAN IMMUNOGLOBULIN G
     Indication: Immunodeficiency common variable
  7. IBUPROFEN [Concomitant]
     Active Substance: IBUPROFEN
  8. RUCONEST [Concomitant]
     Active Substance: CONESTAT ALFA
  9. SODIUM CHLORIDE [Concomitant]
     Active Substance: SODIUM CHLORIDE
  10. HEPARIN LOCK FLUSH [Concomitant]
     Active Substance: HEPARIN SODIUM

REACTIONS (5)
  - Post procedural infection [Unknown]
  - Hereditary angioedema [Recovered/Resolved]
  - Weight decreased [Unknown]
  - Weight increased [Unknown]
  - Illness [Unknown]

NARRATIVE: CASE EVENT DATE: 20240730
